FAERS Safety Report 8533768-3 (Version None)
Quarter: 2012Q3

REPORT INFORMATION
  Report Type: 
  Country: None (occurrence: None)
  Receive Date: 20120724
  Receipt Date: 20120705
  Transmission Date: 20120928
  Serious: No
  Sender: FDA-Public Use
  Company Number: US-ASTRAZENECA-2012SE41269

PATIENT
  Age: 51 Year
  Sex: Female

DRUGS (16)
  1. ATACAND [Suspect]
     Route: 048
  2. ATACAND HCT [Suspect]
     Dosage: 32 MG-25 MG, ONE TABLET DAILY
     Route: 048
  3. ZOMIG [Concomitant]
  4. ATACAND [Suspect]
     Route: 048
  5. SKELAXIN [Concomitant]
  6. HYDROCHLOROTHIAZIDE [Concomitant]
  7. AMITRIPTYLINE HYDROCHLORIDEE [Concomitant]
  8. ZOLPIDEM TARTRATE [Concomitant]
  9. LORCET-HD [Concomitant]
  10. LORAZEPAM [Concomitant]
  11. PREMARIN [Concomitant]
  12. LEVOTHYROXINE SODIUM [Concomitant]
  13. TRICOR [Concomitant]
  14. KAON CL [Concomitant]
  15. PROMETHAZINE HYDROCHLORIDE [Concomitant]
  16. NEXIUM [Concomitant]

REACTIONS (25)
  - DEPRESSION [None]
  - ANXIETY [None]
  - DIZZINESS [None]
  - PARAESTHESIA [None]
  - SJOGREN'S SYNDROME [None]
  - ADVERSE DRUG REACTION [None]
  - TONGUE DRY [None]
  - HEADACHE [None]
  - CHEST DISCOMFORT [None]
  - DEHYDRATION [None]
  - HEART RATE INCREASED [None]
  - GASTROOESOPHAGEAL REFLUX DISEASE [None]
  - BLOOD PRESSURE DECREASED [None]
  - LIP DRY [None]
  - BLOOD PRESSURE INCREASED [None]
  - NAUSEA [None]
  - HYPERTRIGLYCERIDAEMIA [None]
  - FATIGUE [None]
  - HYPOAESTHESIA [None]
  - FIBROMYALGIA [None]
  - VITAMIN B12 DEFICIENCY [None]
  - PRESYNCOPE [None]
  - DYSPNOEA [None]
  - PAIN [None]
  - SLEEP DISORDER [None]
